FAERS Safety Report 8228577-9 (Version None)
Quarter: 2012Q1

REPORT INFORMATION
  Report Type: 
  Country: None (occurrence: None)
  Receive Date: 20120322
  Receipt Date: 20110330
  Transmission Date: 20120608
  Serious: Yes (Other)
  Sender: FDA-Public Use
  Company Number: US-BRISTOL-MYERS SQUIBB COMPANY-15645468

PATIENT

DRUGS (1)
  1. ERBITUX [Suspect]
     Indication: NON-SMALL CELL LUNG CANCER

REACTIONS (1)
  - INFUSION RELATED REACTION [None]
